FAERS Safety Report 24709161 (Version 1)
Quarter: 2024Q4

REPORT INFORMATION
  Report Type: Spontaneous
  Country: QA (occurrence: QA)
  Receive Date: 20241208
  Receipt Date: 20241208
  Transmission Date: 20250115
  Serious: Yes (Death)
  Sender: BEIGENE
  Company Number: QA-BEIGENE-BGN-2024-019759

PATIENT

DRUGS (1)
  1. BRUKINSA [Suspect]
     Active Substance: ZANUBRUTINIB
     Indication: Marginal zone lymphoma

REACTIONS (1)
  - Death [Fatal]
